FAERS Safety Report 8796299 (Version 1)
Quarter: 2012Q4

REPORT INFORMATION
  Report Type: 
  Country: AU (occurrence: AU)
  Receive Date: 20120919
  Receipt Date: 20120919
  Transmission Date: 20130627
  Serious: Yes (Hospitalization, Other)
  Sender: FDA-Public Use
  Company Number: AU-PFIZER INC-2012207635

PATIENT
  Age: 68 Year
  Sex: Male
  Weight: 74 kg

DRUGS (7)
  1. SUTENT [Suspect]
     Indication: RENAL CELL CARCINOMA
     Dosage: 50 mg, 1x/day, day 1-28
     Route: 048
     Dates: start: 201208, end: 20120820
  2. DILANTIN [Interacting]
     Indication: CONVULSION
     Dosage: 200 mg, 2x/day
     Route: 048
     Dates: end: 20120821
  3. BICOR [Concomitant]
     Dosage: 5 mg, 1x/day
  4. VALIUM [Concomitant]
     Dosage: 2.5 mg, 2x/day as needed
  5. COVERSYL [Concomitant]
     Dosage: 10 mg, 1x/day
  6. CRESTOR [Concomitant]
     Dosage: 20 mg, 1x/day
  7. CARTIA [Concomitant]
     Dosage: 100 mg, 1x/day

REACTIONS (3)
  - Drug interaction [Recovered/Resolved with Sequelae]
  - Anticonvulsant drug level increased [Recovered/Resolved with Sequelae]
  - Confusional state [Recovered/Resolved with Sequelae]
